FAERS Safety Report 8310202-X (Version None)
Quarter: 2012Q2

REPORT INFORMATION
  Report Type: 
  Country: None (occurrence: None)
  Receive Date: 20120425
  Receipt Date: 20120418
  Transmission Date: 20120825
  Serious: Yes (Hospitalization)
  Sender: FDA-Public Use
  Company Number: US-BAYER-2012-039295

PATIENT
  Age: 22 Year
  Sex: Female

DRUGS (5)
  1. YAZ [Suspect]
  2. VALIUM [Concomitant]
     Dosage: UNK
     Route: 048
     Dates: start: 20101001
  3. ROBAXIN [Concomitant]
     Dosage: 750 MG,EVERY 6-8 HOURS AS MEEDED
     Route: 048
     Dates: start: 20101012
  4. CRANBERRY [Concomitant]
     Indication: URINARY TRACT INFECTION
     Dosage: 1 TABLET DAILY
     Dates: start: 20101001
  5. TRAMADOL HCL [Concomitant]
     Dosage: 50 MG, 4IW
     Route: 048
     Dates: start: 20101001

REACTIONS (1)
  - PULMONARY EMBOLISM [None]
